FAERS Safety Report 6998383-1 (Version None)
Quarter: 2010Q3

REPORT INFORMATION
  Report Type: 
  Country: None (occurrence: None)
  Receive Date: 20100920
  Receipt Date: 20100907
  Transmission Date: 20110219
  Serious: Yes (Hospitalization)
  Sender: FDA-Public Use
  Company Number: US-JNJFOC-20100902777

PATIENT
  Sex: Female

DRUGS (2)
  1. REMICADE [Suspect]
     Indication: PRODUCT USED FOR UNKNOWN INDICATION
     Route: 042
  2. HUMIRA [Suspect]
     Indication: CROHN'S DISEASE
     Route: 058

REACTIONS (10)
  - ABSCESS [None]
  - BLOOD POTASSIUM DECREASED [None]
  - CROHN'S DISEASE [None]
  - FATIGUE [None]
  - FISTULA [None]
  - HOSPITALISATION [None]
  - ILL-DEFINED DISORDER [None]
  - MALABSORPTION [None]
  - NEPHROLITHIASIS [None]
  - PAIN [None]
